FAERS Safety Report 8625419-4 (Version None)
Quarter: 2012Q3

REPORT INFORMATION
  Report Type: 
  Country: None (occurrence: None)
  Receive Date: 20120827
  Receipt Date: 20120817
  Transmission Date: 20120928
  Serious: Yes (Other)
  Sender: FDA-Public Use
  Company Number: CHPA2012JP018687

PATIENT
  Sex: Female

DRUGS (2)
  1. NICOTINE [Suspect]
     Indication: SMOKING CESSATION THERAPY
     Dosage: 35 MG, QD
     Route: 062
     Dates: start: 20120817, end: 20120817
  2. DRUG THERAPY NOS [Concomitant]
     Indication: PANIC DISORDER
     Dosage: UNK, UNK

REACTIONS (2)
  - TREMOR [None]
  - VISUAL IMPAIRMENT [None]
